FAERS Safety Report 4972027-2 (Version None)
Quarter: 2006Q2

REPORT INFORMATION
  Report Type: 
  Country: None (occurrence: None)
  Receive Date: 20060413
  Receipt Date: 20021122
  Transmission Date: 20061013
  Serious: Yes (Hospitalization)
  Sender: FDA-Public Use
  Company Number: DE-ROCHE-326266

PATIENT
  Age: 32 Year
  Sex: Male
  Weight: 96 kg

DRUGS (2)
  1. PEG-INTERFERON ALFA 2A (RO 25-8310) [Suspect]
     Indication: HEPATITIS B
     Route: 058
     Dates: start: 20020506, end: 20021118
  2. LAMIVUDINE [Suspect]
     Indication: HEPATITIS B
     Route: 048
     Dates: start: 20020506

REACTIONS (4)
  - DIZZINESS [None]
  - HYPERVENTILATION [None]
  - NAUSEA [None]
  - PARAESTHESIA [None]
